FAERS Safety Report 5162020-1 (Version None)
Quarter: 2006Q4

REPORT INFORMATION
  Report Type: 
  Country: None (occurrence: None)
  Receive Date: 20061121
  Receipt Date: 20061110
  Transmission Date: 20070319
  Serious: Yes (Disabling, Other)
  Sender: FDA-Public Use
  Company Number: 2005RL000149

PATIENT
  Age: 61 Year
  Sex: Female
  Weight: 95 kg

DRUGS (7)
  1. PROPAFENONE HYDROCHLORIDE [Suspect]
     Indication: DRUG USE FOR UNKNOWN INDICATION
  2. DICLOFENAC SODIUM [Concomitant]
  3. ESOMEPRAZOLE MAGNESIUM [Concomitant]
  4. ATORVASTATIN CALCIUM [Concomitant]
  5. AMITRIPTYLINE HCL [Concomitant]
  6. TIBOLONE [Concomitant]
  7. ECHINACEA EXTRACT [Concomitant]

REACTIONS (1)
  - HEPATITIS [None]
